FAERS Safety Report 8488888-9 (Version None)
Quarter: 2012Q3

REPORT INFORMATION
  Report Type: 
  Country: None (occurrence: None)
  Receive Date: 20120705
  Receipt Date: 20120622
  Transmission Date: 20120928
  Serious: Yes (Hospitalization)
  Sender: FDA-Public Use
  Company Number: JP-ROCHE-1082777

PATIENT
  Sex: Female

DRUGS (11)
  1. ACTEMRA [Suspect]
     Route: 041
     Dates: start: 20090122, end: 20090122
  2. ACTEMRA [Suspect]
     Route: 041
     Dates: start: 20090416, end: 20090805
  3. METHOTREXATE [Concomitant]
     Indication: RHEUMATOID ARTHRITIS
     Route: 048
  4. ACTEMRA [Suspect]
     Indication: RHEUMATOID ARTHRITIS
     Route: 041
     Dates: start: 20080930, end: 20080930
  5. ACTEMRA [Suspect]
     Route: 041
     Dates: start: 20081126, end: 20081126
  6. ACTEMRA [Suspect]
     Route: 041
     Dates: start: 20091216
  7. ACTEMRA [Suspect]
     Route: 041
     Dates: start: 20081225, end: 20081225
  8. ACTEMRA [Suspect]
     Route: 041
     Dates: start: 20090319, end: 20090319
  9. ACTEMRA [Suspect]
     Route: 041
     Dates: start: 20081028, end: 20081028
  10. ACTEMRA [Suspect]
     Route: 041
     Dates: start: 20090219, end: 20090219
  11. PREDNISOLONE [Concomitant]
     Indication: RHEUMATOID ARTHRITIS
     Route: 048

REACTIONS (2)
  - ARTHRALGIA [None]
  - JOINT SWELLING [None]
